FAERS Safety Report 6919054-3 (Version None)
Quarter: 2010Q3

REPORT INFORMATION
  Report Type: 
  Country: None (occurrence: None)
  Receive Date: 20100811
  Receipt Date: 20100728
  Transmission Date: 20110219
  Serious: Yes (Other)
  Sender: FDA-Public Use
  Company Number: PHHY2010US36368

PATIENT
  Sex: Male

DRUGS (17)
  1. STALEVO 100 [Suspect]
     Indication: PARKINSON'S DISEASE
     Dosage: 1 DF 6 TIMES A DAY
  2. STALEVO 100 [Suspect]
     Dosage: 1 DF 5 TIMES A DAY
  3. STALEVO 100 [Suspect]
     Dosage: 1 DF 6 TIMES A DAY
  4. METOPROLOL [Concomitant]
     Dosage: 50 MG, ONCE A DAY
  5. FLOMAX [Concomitant]
     Dosage: 0.04 MG, ONCE A DAY
  6. TRIAMTERENE AND HYDROCHLOROTHIAZIDE [Concomitant]
     Dosage: 37.5-25 ONCE A DAY
  7. ARICEPT [Concomitant]
     Dosage: 10 MG ONCE A DAY
  8. APOMORPHINE [Concomitant]
     Dosage: 5 TIMES A DAY
  9. HYDROCHLORIDE [Concomitant]
     Dosage: 2 MG, 3 TIMES
  10. XALATAN [Concomitant]
     Dosage: UNK
  11. REMERON [Concomitant]
     Dosage: 15 MG, UNK
  12. COMTAN [Concomitant]
     Indication: PARKINSON'S DISEASE
     Dosage: UNK
  13. LEVODOPA [Concomitant]
     Indication: PARKINSON'S DISEASE
     Dosage: 1200 MG DAILY
  14. REQUIP XL [Concomitant]
     Dosage: 2 MG DAILY
  15. REQUIP XL [Concomitant]
     Dosage: 4 MG DAILY
  16. TERAZOSIN HCL [Concomitant]
     Dosage: UNK
  17. TIGAN [Concomitant]
     Dosage: UNK, BID

REACTIONS (22)
  - ABNORMAL BEHAVIOUR [None]
  - ACTIVITIES OF DAILY LIVING IMPAIRED [None]
  - AFFECT LABILITY [None]
  - AGGRESSION [None]
  - BRADYKINESIA [None]
  - COGNITIVE DISORDER [None]
  - DRUG EFFECT DECREASED [None]
  - DYSKINESIA [None]
  - DYSPHONIA [None]
  - FREEZING PHENOMENON [None]
  - GAIT DISTURBANCE [None]
  - HALLUCINATION [None]
  - HALLUCINATION, VISUAL [None]
  - HYPERTONIA [None]
  - HYPOREFLEXIA [None]
  - INSOMNIA [None]
  - LOGORRHOEA [None]
  - MEMORY IMPAIRMENT [None]
  - MOVEMENT DISORDER [None]
  - NAUSEA [None]
  - PARANOIA [None]
  - POSTURE ABNORMAL [None]
